FAERS Safety Report 12304566 (Version 2)
Quarter: 2016Q2

REPORT INFORMATION
  Report Type: Report from Study
  Country: CA (occurrence: CA)
  Receive Date: 20160426
  Receipt Date: 20160617
  Transmission Date: 20160815
  Serious: No
  Sender: FDA-Public Use
  Company Number: PHHY2016CA055639

PATIENT
  Age: 55 Year
  Sex: Female

DRUGS (2)
  1. ILARIS [Suspect]
     Active Substance: CANAKINUMAB
     Indication: MUCKLE-WELLS SYNDROME
     Dosage: 300 MG, EVERY 8 WEEKS
     Route: 058
     Dates: start: 20140602
  2. ILARIS [Suspect]
     Active Substance: CANAKINUMAB
     Dosage: 150 MG, EVERY 8 WEEKS
     Route: 058

REACTIONS (9)
  - Fatigue [Unknown]
  - Pyrexia [Unknown]
  - Hypoacusis [Unknown]
  - Inflammatory marker increased [Unknown]
  - Rash [Unknown]
  - Temperature intolerance [Unknown]
  - Arthralgia [Unknown]
  - Malaise [Unknown]
  - Conjunctivitis [Unknown]

NARRATIVE: CASE EVENT DATE: 201507
